FAERS Safety Report 23156002 (Version 1)
Quarter: 2023Q4

REPORT INFORMATION
  Report Type: Spontaneous
  Country: BR (occurrence: BR)
  Receive Date: 20231107
  Receipt Date: 20231107
  Transmission Date: 20240110
  Serious: No
  Sender: FDA-Public Use
  Company Number: BR-Covis Pharma GmbH-2023COV01767

PATIENT
  Sex: Female

DRUGS (1)
  1. OMNARIS [Suspect]
     Active Substance: CICLESONIDE
     Indication: Nasal septum deviation
     Dosage: 1 DROP IN EACH NOSTRIL
     Route: 045

REACTIONS (1)
  - Product use in unapproved indication [Unknown]
